FAERS Safety Report 8049093-3 (Version None)
Quarter: 2012Q1

REPORT INFORMATION
  Report Type: 
  Country: None (occurrence: None)
  Receive Date: 20120117
  Receipt Date: 20120109
  Transmission Date: 20120608
  Serious: Yes (Other)
  Sender: FDA-Public Use
  Company Number: AU-PFIZER INC-2012007130

PATIENT
  Age: 15 Year
  Sex: Male

DRUGS (3)
  1. PAMIDRONATE DISODIUM [Suspect]
     Route: 042
  2. CALCITRIOL [Concomitant]
     Dosage: 0.25 UG, 2X/DAY
  3. VITAMIN D [Interacting]

REACTIONS (2)
  - DRUG INTERACTION [None]
  - NEPHROCALCINOSIS [None]
